FAERS Safety Report 25329931 (Version 1)
Quarter: 2025Q2

REPORT INFORMATION
  Report Type: Spontaneous
  Country: US (occurrence: US)
  Receive Date: 20250519
  Receipt Date: 20250519
  Transmission Date: 20250717
  Serious: No
  Sender: BRISTOL-MYERS SQUIBB COMPANY
  Company Number: US-BRISTOL-MYERS SQUIBB COMPANY-2025-069857

PATIENT
  Sex: Female

DRUGS (2)
  1. ORENCIA [Suspect]
     Active Substance: ABATACEPT
     Indication: Swelling
     Dosage: 1 INJECTION
     Route: 058
     Dates: start: 20250101
  2. ORENCIA [Suspect]
     Active Substance: ABATACEPT
     Indication: Arthralgia

REACTIONS (3)
  - Therapy non-responder [Unknown]
  - Off label use [Unknown]
  - Pain in extremity [Unknown]
